FAERS Safety Report 4870706-9 (Version None)
Quarter: 2006Q1

REPORT INFORMATION
  Report Type: 
  Country: None (occurrence: None)
  Receive Date: 20060103
  Receipt Date: 20051222
  Transmission Date: 20060701
  Serious: Yes (Hospitalization)
  Sender: FDA-Public Use
  Company Number: JP-GLAXOSMITHKLINE-B0404803A

PATIENT
  Age: 54 Year
  Sex: Male

DRUGS (4)
  1. EPIVIR [Suspect]
     Indication: HIV INFECTION
     Dosage: 150MG TWICE PER DAY
     Route: 048
     Dates: start: 19990622
  2. ZIAGEN [Suspect]
     Indication: HIV INFECTION
     Dosage: 300MG TWICE PER DAY
     Route: 048
     Dates: start: 20040820
  3. VIRAMUNE [Suspect]
     Indication: HIV INFECTION
     Route: 048
     Dates: start: 19990629
  4. ZERIT [Concomitant]
     Indication: HIV INFECTION
     Dosage: 40MG TWICE PER DAY
     Route: 048
     Dates: start: 19990622, end: 20040819

REACTIONS (3)
  - CARDIAC MURMUR [None]
  - FATIGUE [None]
  - HYPERHIDROSIS [None]
